FAERS Safety Report 5495191-8 (Version None)
Quarter: 2007Q4

REPORT INFORMATION
  Report Type: 
  Country: None (occurrence: None)
  Receive Date: 20071024
  Receipt Date: 20070806
  Transmission Date: 20080405
  Serious: No
  Sender: FDA-Public Use
  Company Number: US-AMGEN-US237934

PATIENT
  Sex: Female

DRUGS (8)
  1. VECTIBIX [Suspect]
     Indication: COLORECTAL CANCER
     Dates: start: 20070305
  2. LEVOXYL [Concomitant]
  3. DIOVAN [Concomitant]
  4. NORVASC [Concomitant]
  5. KYTRIL [Concomitant]
  6. COMPAZINE [Concomitant]
  7. CAMPTOSAR [Concomitant]
  8. XANAX [Concomitant]

REACTIONS (12)
  - DEPRESSION [None]
  - DIARRHOEA [None]
  - DRY SKIN [None]
  - HEADACHE [None]
  - HYPOGLYCAEMIA [None]
  - HYPOTENSION [None]
  - NAIL BED INFLAMMATION [None]
  - ONYCHALGIA [None]
  - PANIC ATTACK [None]
  - RASH [None]
  - THYROID FUNCTION TEST ABNORMAL [None]
  - WEIGHT INCREASED [None]
